FAERS Safety Report 19869242 (Version 3)
Quarter: 2022Q3

REPORT INFORMATION
  Report Type: Report from Study
  Country: US (occurrence: US)
  Receive Date: 20210922
  Receipt Date: 20220711
  Transmission Date: 20221026
  Serious: No
  Sender: FDA-Public Use
  Company Number: US-NOVARTISTESTPH-NVSC2021US213598

PATIENT
  Sex: Male

DRUGS (1)
  1. COSENTYX [Suspect]
     Active Substance: SECUKINUMAB
     Indication: Ankylosing spondylitis
     Dosage: 150 MG, QMO
     Route: 058

REACTIONS (6)
  - Headache [Unknown]
  - Dizziness [Unknown]
  - Nausea [Unknown]
  - Musculoskeletal stiffness [Unknown]
  - Asthenia [Unknown]
  - Fatigue [Unknown]
